FAERS Safety Report 21188078 (Version 1)
Quarter: 2022Q3

REPORT INFORMATION
  Report Type: Spontaneous
  Country: US (occurrence: US)
  Receive Date: 20220809
  Receipt Date: 20220809
  Transmission Date: 20221027
  Serious: No
  Sender: FDA-Public Use
  Company Number: US-BRISTOL-MYERS SQUIBB COMPANY-2022-086444

PATIENT
  Age: 69 Year
  Sex: Female

DRUGS (2)
  1. ORENCIA [Suspect]
     Active Substance: ABATACEPT
     Indication: Rheumatoid arthritis
     Route: 058
     Dates: start: 20210430
  2. ORENCIA [Suspect]
     Active Substance: ABATACEPT
     Indication: Crohn^s disease

REACTIONS (4)
  - Eye pain [Unknown]
  - Eye swelling [Unknown]
  - Cough [Unknown]
  - Eye discharge [Unknown]

NARRATIVE: CASE EVENT DATE: 20220101
